FAERS Safety Report 9416820 (Version 1)
Quarter: 2013Q3

REPORT INFORMATION
  Report Type: Spontaneous
  Country: US (occurrence: US)
  Receive Date: 20130724
  Receipt Date: 20130724
  Transmission Date: 20140515
  Serious: Yes (Other)
  Sender: FDA-Public Use
  Company Number: US-BAYER-2013-088172

PATIENT
  Age: 43 Year
  Sex: Female

DRUGS (1)
  1. MIRENA [Suspect]
     Indication: MENSTRUATION IRREGULAR
     Dosage: UNK
     Dates: start: 201110

REACTIONS (7)
  - Vaginal haemorrhage [None]
  - Device dislocation [Not Recovered/Not Resolved]
  - Menstrual disorder [None]
  - Urinary tract infection [None]
  - Genital haemorrhage [None]
  - Contusion [None]
  - Alopecia [None]
